FAERS Safety Report 8952997 (Version 1)
Quarter: 2012Q4

REPORT INFORMATION
  Report Type: 
  Country: IN (occurrence: IN)
  Receive Date: 20121205
  Receipt Date: 20121205
  Transmission Date: 20130627
  Serious: Yes (Death)
  Sender: FDA-Public Use
  Company Number: PHHY2012IN111973

PATIENT
  Age: 60 Year
  Sex: Female

DRUGS (2)
  1. ACLASTA [Suspect]
     Indication: OSTEOPOROSIS
     Dosage: 5 mg/100ml once a year
     Route: 042
     Dates: start: 20100330
  2. ACLASTA [Suspect]
     Dosage: 5 mg/100ml once a year
     Route: 042
     Dates: start: 20110330

REACTIONS (1)
  - Spinal cord injury [Fatal]
